FAERS Safety Report 5863788-9 (Version None)
Quarter: 2008Q3

REPORT INFORMATION
  Report Type: 
  Country: None (occurrence: None)
  Receive Date: 20080827
  Receipt Date: 20080731
  Transmission Date: 20090109
  Serious: No
  Sender: FDA-Public Use
  Company Number: ADE#08-119

PATIENT
  Sex: Female

DRUGS (1)
  1. TRAMADOL HCL [Suspect]

REACTIONS (4)
  - CONSTIPATION [None]
  - HEADACHE [None]
  - SYNCOPE [None]
  - URINARY TRACT INFECTION [None]
